FAERS Safety Report 23302925 (Version 1)
Quarter: 2023Q4

REPORT INFORMATION
  Report Type: Spontaneous
  Country: US (occurrence: US)
  Receive Date: 20231215
  Receipt Date: 20231215
  Transmission Date: 20240109
  Serious: No
  Sender: FDA-Public Use
  Company Number: US-PRIMUS-2023-US-010884

PATIENT
  Age: 72 Year
  Sex: Male

DRUGS (1)
  1. IMPOYZ [Suspect]
     Active Substance: CLOBETASOL PROPIONATE
     Indication: Product used for unknown indication
     Dosage: APPLY A THIN LAYER TO THE AFFECTED AREA(S) BY TOPICAL ROUTE 2 TIMES PER DAY ; RUB IN GENTLY AND COMP
     Route: 061
     Dates: start: 20230415, end: 20230426

REACTIONS (3)
  - Skin discolouration [Unknown]
  - Application site pain [Unknown]
  - Application site pruritus [Unknown]
